FAERS Safety Report 8272041-8 (Version None)
Quarter: 2012Q2

REPORT INFORMATION
  Report Type: 
  Country: None (occurrence: None)
  Receive Date: 20120410
  Receipt Date: 20120410
  Transmission Date: 20120825
  Serious: No
  Sender: FDA-Public Use
  Company Number: US-BAYER-2012-034586

PATIENT
  Age: 46 Year
  Sex: Female
  Weight: 127 kg

DRUGS (5)
  1. MULTI MEGA TAB MINERALS [Concomitant]
  2. FISH OIL [Concomitant]
     Dosage: 1200 MG, UNK
  3. BETASERON [Suspect]
     Indication: PRODUCT USED FOR UNKNOWN INDICATION
     Dosage: 0.25 MG, QOD
     Route: 058
  4. CALCIUM CARBONATE [Concomitant]
  5. VITAMIN D [Concomitant]
     Dosage: 2000 U, UNK

REACTIONS (2)
  - PYREXIA [None]
  - PAIN [None]
